FAERS Safety Report 23450822 (Version 1)
Quarter: 2024Q1

REPORT INFORMATION
  Report Type: Spontaneous
  Country: FR (occurrence: FR)
  Receive Date: 20240129
  Receipt Date: 20240129
  Transmission Date: 20240410
  Serious: Yes (Death, Life-Threatening, Hospitalization)
  Sender: FDA-Public Use
  Company Number: FR-MACLEODS PHARMACEUTICALS US LTD-MAC2024045523

PATIENT

DRUGS (8)
  1. METFORMIN [Suspect]
     Active Substance: METFORMIN HYDROCHLORIDE
     Indication: Diabetes mellitus
     Dosage: 2.4 GRAM, QD
     Route: 065
  2. PROPRANOLOL [Concomitant]
     Active Substance: PROPRANOLOL HYDROCHLORIDE
     Indication: Hypertension
     Dosage: UNK
     Route: 065
  3. FUROSEMIDE [Concomitant]
     Active Substance: FUROSEMIDE
     Indication: Product used for unknown indication
     Dosage: UNK
     Route: 065
  4. FUROSEMIDE [Concomitant]
     Active Substance: FUROSEMIDE
     Indication: Hypertension
     Dosage: 250 MILLIGRAM ON DAY 1
     Route: 065
  5. FUROSEMIDE [Concomitant]
     Active Substance: FUROSEMIDE
     Dosage: 560 MILLIGRAM ON DAY 2
     Route: 065
  6. FUROSEMIDE [Concomitant]
     Active Substance: FUROSEMIDE
     Dosage: 450 MILLIGRAM ON DAY 3
     Route: 065
  7. CLONIDINE [Concomitant]
     Active Substance: CLONIDINE
     Indication: Hypertension
     Dosage: UNK
     Route: 065
  8. CLOFIBRATE [Concomitant]
     Active Substance: CLOFIBRATE
     Indication: Hyperlipidaemia
     Dosage: UNK
     Route: 065

REACTIONS (3)
  - Hemiplegia [Fatal]
  - Coma [Recovered/Resolved]
  - Lactic acidosis [Recovered/Resolved]
